FAERS Safety Report 9229042 (Version 1)
Quarter: 2013Q2

REPORT INFORMATION
  Report Type: Spontaneous
  Country: GB (occurrence: GB)
  Receive Date: 20130412
  Receipt Date: 20130412
  Transmission Date: 20140414
  Serious: Yes (Hospitalization)
  Sender: FDA-Public Use
  Company Number: PHHY2013GB034624

PATIENT
  Age: 70 Year
  Sex: Male

DRUGS (4)
  1. CLOPIDOGREL [Suspect]
  2. ACETYLSALICYLIC ACID [Suspect]
  3. GENTAMICIN [Concomitant]
     Indication: GENERAL ANAESTHESIA
     Route: 042
  4. METRONIDAZOLE [Concomitant]
     Indication: GENERAL ANAESTHESIA
     Route: 042

REACTIONS (8)
  - Cholecystitis acute [Recovered/Resolved]
  - Abdominal pain upper [Recovered/Resolved]
  - Pyrexia [Recovered/Resolved]
  - Biliary colic [Unknown]
  - Abdominal distension [Recovered/Resolved]
  - Jaundice [Recovered/Resolved]
  - Haemobilia [Recovered/Resolved]
  - Thrombosis [Recovered/Resolved]
